FAERS Safety Report 6743421-4 (Version None)
Quarter: 2010Q2

REPORT INFORMATION
  Report Type: 
  Country: None (occurrence: None)
  Receive Date: 20100527
  Receipt Date: 20100514
  Transmission Date: 20101027
  Serious: Yes (Other)
  Sender: FDA-Public Use
  Company Number: PHHY2010JP20851

PATIENT
  Sex: Male
  Weight: 61 kg

DRUGS (8)
  1. ICL670A ICL+DISTAB [Suspect]
     Indication: IRON OVERLOAD
     Dosage: 500 MG DAILY
     Route: 048
     Dates: start: 20100302, end: 20100330
  2. PRIMOBOLAN [Concomitant]
     Dosage: 20 MG, UNK
     Route: 048
  3. GASTER D [Concomitant]
     Dosage: 20 MG, UNK
     Route: 048
  4. ZYLORIC [Concomitant]
     Dosage: 100 MG, UNK
     Route: 048
  5. FOLIAMIN [Concomitant]
     Dosage: 1 DF, UNK
     Route: 048
  6. COTRIM [Concomitant]
     Dosage: 1 DF, UNK
     Route: 048
  7. NEORAL [Concomitant]
     Dosage: 100 MG, UNK
     Route: 048
  8. SEREVENT [Concomitant]
     Dosage: 2 DF, UNK

REACTIONS (5)
  - HICCUPS [None]
  - HYPONATRAEMIA [None]
  - NAUSEA [None]
  - VOMITING [None]
  - WHITE BLOOD CELL COUNT DECREASED [None]
